FAERS Safety Report 9026075 (Version 1)
Quarter: 2012Q4

REPORT INFORMATION
  Report Type: Spontaneous
  Country: US (occurrence: None)
  Receive Date: 20121207
  Receipt Date: 20121207
  Transmission Date: 20130627
  Serious: Yes (Death, Hospitalization)
  Sender: FDA-Public Use
  Company Number: AUR-APL-2012-05221

PATIENT
  Age: 75 Year
  Sex: Male

DRUGS (10)
  1. LEVOFLOXACIN [Suspect]
     Indication: PROPHYLAXIS
     Dosage: (500 mg,  1 D), Unknown
  2. VALACYCLOVIR [Suspect]
     Indication: PROPHYLAXIS
     Dosage: (500 mg, 1 D), Unknown
  3. FLUCONAZOLE [Suspect]
     Indication: PROPHYLAXIS
     Dosage: (200 mg, 1 D), Unknown
 - Stopped
  4. VORICONAZOLE [Suspect]
     Indication: ANTIFUNGAL PROPHYLAXIS
     Dosage: 400 mg  (200 mg, 2 in 1 D), Unknown
  5. CASPOFUNGIN [Suspect]
     Indication: DRUG USE FOR UNKNOWN INDICATION
     Dosage: Intravenous
     Route: 042
  6. MEROPENEM [Suspect]
     Indication: DRUG USE FOR UNKNOWN INDICATION
     Dosage: Intravenous
     Route: 042
  7. DAPTOMYCIN [Suspect]
     Indication: DRUG USE FOR UNKNOWN INDICATION
     Dosage: Unknown
  8. POSACONAZOLE [Suspect]
     Indication: CANDIDA KRUSEI INFECTION
     Dosage: 800 mg (400 mg, 2 in 1 D), Oral
     Route: 048
  9. FLUDARABINE (FLUDARABINE) [Concomitant]
  10. CYTARABINE (CYTARABINE) [Concomitant]

REACTIONS (1)
  - Cellulitis [None]
